FAERS Safety Report 23860703 (Version 1)
Quarter: 2024Q2

REPORT INFORMATION
  Report Type: Report from Study
  Country: BR (occurrence: BR)
  Receive Date: 20240516
  Receipt Date: 20240516
  Transmission Date: 20240716
  Serious: Yes (Other)
  Sender: FDA-Public Use
  Company Number: BR-CELLTRION INC.-2022BR014389

PATIENT

DRUGS (6)
  1. TRUXIMA [Suspect]
     Active Substance: RITUXIMAB-ABBS
     Indication: Pemphigus
     Dosage: 1 AMPOULE EVERY 6 MONTHS
     Route: 042
     Dates: start: 20220921
  2. VORTIOXETINE [Concomitant]
     Active Substance: VORTIOXETINE
     Indication: Depression
     Dosage: 1 PILL A DAY
     Route: 048
     Dates: start: 20240508
  3. ONDANSETRON [Concomitant]
     Active Substance: ONDANSETRON
     Indication: Nausea
     Dosage: WHEN NAUSEA
     Route: 048
     Dates: start: 20240508
  4. EZETIMIBE\ROSUVASTATIN [Concomitant]
     Active Substance: EZETIMIBE\ROSUVASTATIN
     Indication: Blood cholesterol increased
     Dosage: 1 PILL A DAY
     Route: 048
     Dates: start: 20240508
  5. VITAMIN D NOS [Concomitant]
     Active Substance: VITAMIN D NOS
     Indication: Supplementation therapy
     Dosage: 5000 ; 1 PILL A WEEK
     Route: 048
     Dates: start: 20240508
  6. CITOBE [Concomitant]
     Indication: Supplementation therapy
     Dosage: 1 PILL A DAY
     Route: 048
     Dates: start: 20240508

REACTIONS (7)
  - Depression [Unknown]
  - Malaise [Unknown]
  - Eating disorder [Unknown]
  - Influenza [Unknown]
  - Nausea [Unknown]
  - Intentional product use issue [Unknown]
  - Intentional dose omission [Unknown]
